FAERS Safety Report 14774761 (Version 1)
Quarter: 2018Q2

REPORT INFORMATION
  Report Type: Spontaneous
  Country: US (occurrence: US)
  Receive Date: 20180418
  Receipt Date: 20180418
  Transmission Date: 20180711
  Serious: No
  Sender: FDA-Public Use
  Company Number: US-ASTELLAS-2017US041261

PATIENT
  Sex: Female

DRUGS (1)
  1. LEXISCAN [Suspect]
     Active Substance: REGADENOSON
     Indication: PRODUCT USED FOR UNKNOWN INDICATION
     Dosage: 0.4 MG/5ML,  UNKNOWN FREQ.
     Route: 042
     Dates: start: 20170923, end: 20170923

REACTIONS (1)
  - Anal incontinence [Unknown]

NARRATIVE: CASE EVENT DATE: 20170923
